FAERS Safety Report 13434937 (Version 1)
Quarter: 2017Q2

REPORT INFORMATION
  Report Type: Spontaneous
  Country: US (occurrence: US)
  Receive Date: 20170412
  Receipt Date: 20170412
  Transmission Date: 20170830
  Serious: No
  Sender: FDA-Public Use
  Company Number: US-SA-2016SA083435

PATIENT
  Age: 25 Year
  Sex: Male

DRUGS (1)
  1. ALLEGRA ALLERGY [Suspect]
     Active Substance: FEXOFENADINE HYDROCHLORIDE
     Indication: HYPERSENSITIVITY
     Route: 048
     Dates: start: 20160423

REACTIONS (8)
  - Vomiting [Unknown]
  - Feeling abnormal [Unknown]
  - Balance disorder [Unknown]
  - Dizziness [Unknown]
  - Headache [Recovering/Resolving]
  - Asthenia [Unknown]
  - Fear of death [Unknown]
  - Dysgeusia [Unknown]

NARRATIVE: CASE EVENT DATE: 20160423
